FAERS Safety Report 4456415-9 (Version None)
Quarter: 2004Q3

REPORT INFORMATION
  Report Type: 
  Country: None (occurrence: None)
  Receive Date: 20040830
  Receipt Date: 20040608
  Transmission Date: 20050211
  Serious: No
  Sender: FDA-Public Use
  Company Number: 207049

PATIENT
  Age: 11 Year
  Sex: Female

DRUGS (6)
  1. XOLAIR [Suspect]
     Indication: ASTHMA
     Dosage: 300 MG, Q2W, SUBCUTANEOUS
     Route: 058
  2. ALLEGRA [Concomitant]
  3. PULMICORT [Concomitant]
  4. FORADIL [Concomitant]
  5. FLONASE [Concomitant]
  6. SINGULARI (MONTELUKAST SODIUM) [Concomitant]

REACTIONS (1)
  - BLOOD GLUCOSE INCREASED [None]
